FAERS Safety Report 8360906-8 (Version None)
Quarter: 2012Q2

REPORT INFORMATION
  Report Type: 
  Country: None (occurrence: None)
  Receive Date: 20120515
  Receipt Date: 20120508
  Transmission Date: 20120825
  Serious: Yes (Life-Threatening, Other)
  Sender: FDA-Public Use
  Company Number: JP-BRISTOL-MYERS SQUIBB COMPANY-16355497

PATIENT
  Age: 87 Year
  Sex: Female

DRUGS (16)
  1. VERAPAMIL HCL [Concomitant]
  2. AVAPRO [Suspect]
     Route: 048
     Dates: start: 20120112, end: 20120116
  3. HYZAAR [Suspect]
     Dosage: PREMINENT
     Route: 048
  4. EVISTA [Concomitant]
  5. CALBLOCK [Concomitant]
  6. LYRICA [Concomitant]
  7. CRESTOR [Concomitant]
  8. METFORMIN HCL [Suspect]
     Dosage: UNK-16JAN2012 16-JAN-2012-STOPED
     Route: 048
  9. ASPIRIN [Concomitant]
  10. MECOBALAMIN [Concomitant]
  11. BUP-4 [Concomitant]
  12. DILTIAZEM HCL [Concomitant]
  13. AMARYL [Concomitant]
  14. NITRODERM [Concomitant]
  15. LOXOPROFEN [Concomitant]
  16. ATENOLOL [Concomitant]

REACTIONS (10)
  - HYPERKALAEMIA [None]
  - BLOOD LACTIC ACID INCREASED [None]
  - DEMENTIA [None]
  - SICK SINUS SYNDROME [None]
  - OVERDOSE [None]
  - RENAL ARTERY STENOSIS [None]
  - URINARY TRACT INFECTION [None]
  - BLOOD PRESSURE DECREASED [None]
  - LOSS OF CONSCIOUSNESS [None]
  - RENAL CYST [None]
